FAERS Safety Report 6737352-3 (Version None)
Quarter: 2010Q2

REPORT INFORMATION
  Report Type: 
  Country: None (occurrence: None)
  Receive Date: 20100521
  Receipt Date: 20100521
  Transmission Date: 20101027
  Serious: Yes (Hospitalization)
  Sender: FDA-Public Use
  Company Number: None

PATIENT
  Age: 2 Month
  Sex: Male
  Weight: 5.4432 kg

DRUGS (1)
  1. LOVENOX [Suspect]
     Indication: DEEP VEIN THROMBOSIS
     Dosage: 60 MG TWICE DAILY SQ
     Route: 058
     Dates: start: 20091212, end: 20100519

REACTIONS (9)
  - BLOOD IRON DECREASED [None]
  - CONTUSION [None]
  - DRUG EXPOSURE VIA BREAST MILK [None]
  - INFANTILE APNOEIC ATTACK [None]
  - LUNG DISORDER [None]
  - MATERNAL DRUGS AFFECTING FOETUS [None]
  - MEDICATION ERROR [None]
  - PREMATURE BABY [None]
  - UNEVALUABLE EVENT [None]
